FAERS Safety Report 8504955-5 (Version None)
Quarter: 2012Q3

REPORT INFORMATION
  Report Type: 
  Country: None (occurrence: None)
  Receive Date: 20120702
  Receipt Date: 20120620
  Transmission Date: 20120928
  Serious: Yes (Other)
  Sender: FDA-Public Use
  Company Number: 2012FR0185

PATIENT
  Sex: Female

DRUGS (2)
  1. PREDNISONE TAB [Concomitant]
  2. KINERET [Suspect]
     Indication: STILL'S DISEASE ADULT ONSET
     Dosage: 100 MG (100 MG,1 IN 1 0)

REACTIONS (4)
  - HEPATIC NECROSIS [None]
  - HEPATITIS ACUTE [None]
  - CHOLESTASIS [None]
  - CELL DEATH [None]
